FAERS Safety Report 11080913 (Version 1)
Quarter: 2015Q2

REPORT INFORMATION
  Report Type: Spontaneous
  Country: US (occurrence: None)
  Receive Date: 20150430
  Receipt Date: 20150430
  Transmission Date: 20150821
  Serious: No
  Sender: FDA-Public Use
  Company Number: None

PATIENT
  Age: 34 Year
  Sex: Male
  Weight: 86.18 kg

DRUGS (3)
  1. ADDERALL GENERIC 20 MG MALLINCKRODT PHARMACEUTICAL [Suspect]
     Active Substance: AMPHETAMINE ASPARTATE\AMPHETAMINE SULFATE\DEXTROAMPHETAMINE SACCHARATE\DEXTROAMPHETAMINE SULFATE
     Indication: DISTURBANCE IN ATTENTION
     Dates: start: 20150426, end: 20150429
  2. RESTORIL 30 MG [Concomitant]
  3. PEPPERMINT ESSENTIAL OIL [Concomitant]

REACTIONS (7)
  - Product substitution issue [None]
  - Product quality issue [None]
  - No therapeutic response [None]
  - Nervousness [None]
  - Feeling jittery [None]
  - Headache [None]
  - Suspected counterfeit product [None]

NARRATIVE: CASE EVENT DATE: 20150429
